FAERS Safety Report 9647941 (Version 2)
Quarter: 2013Q4

REPORT INFORMATION
  Report Type: Spontaneous
  Country: US (occurrence: US)
  Receive Date: 20131028
  Receipt Date: 20131114
  Transmission Date: 20140711
  Serious: No
  Sender: FDA-Public Use
  Company Number: US-PFIZER INC-2013306044

PATIENT
  Sex: 0

DRUGS (1)
  1. LYRICA [Suspect]
     Indication: CONVULSION
     Dosage: 75 MG, 1X/DAY

REACTIONS (4)
  - Drug ineffective [Unknown]
  - Asthenia [Unknown]
  - Myalgia [Unknown]
  - Oral pain [Unknown]
